FAERS Safety Report 21511778 (Version 4)
Quarter: 2023Q1

REPORT INFORMATION
  Report Type: Spontaneous
  Country: US (occurrence: US)
  Receive Date: 20221027
  Receipt Date: 20230331
  Transmission Date: 20230417
  Serious: No
  Sender: FDA-Public Use
  Company Number: US-BRISTOL-MYERS SQUIBB COMPANY-2022-127335

PATIENT
  Age: 16 Year
  Sex: Male

DRUGS (9)
  1. THALOMID [Suspect]
     Active Substance: THALIDOMIDE
     Indication: Malignant central nervous system neoplasm
     Route: 048
     Dates: start: 20221025
  2. THALOMID [Suspect]
     Active Substance: THALIDOMIDE
     Indication: Ependymoma
     Route: 048
  3. ETOPOSIDE [Suspect]
     Active Substance: ETOPOSIDE
     Indication: Chemotherapy
     Route: 048
     Dates: start: 20221025
  4. RISPERIDONE [Suspect]
     Active Substance: RISPERIDONE
     Indication: Depression
     Route: 048
  5. CYTOXAN [Suspect]
     Active Substance: CYCLOPHOSPHAMIDE
     Indication: Chemotherapy
     Route: 048
     Dates: start: 20221025
  6. LEXAPRO [Suspect]
     Active Substance: ESCITALOPRAM OXALATE
     Indication: Depression
     Route: 048
  7. ADDERALL [Concomitant]
     Active Substance: AMPHETAMINE ASPARTATE\AMPHETAMINE SULFATE\DEXTROAMPHETAMINE SACCHARATE\DEXTROAMPHETAMINE SULFATE
     Indication: Attention deficit hyperactivity disorder
     Dosage: QAM
     Route: 048
  8. CELEBREX [Concomitant]
     Active Substance: CELECOXIB
     Indication: Chemotherapy
     Route: 048
     Dates: start: 20221025
  9. GUANFACINE [Concomitant]
     Active Substance: GUANFACINE
     Indication: Attention deficit hyperactivity disorder
     Route: 048

REACTIONS (2)
  - Intentional product use issue [Unknown]
  - Fatigue [Recovered/Resolved]

NARRATIVE: CASE EVENT DATE: 20221103
